FAERS Safety Report 15595689 (Version 3)
Quarter: 2022Q2

REPORT INFORMATION
  Report Type: Spontaneous
  Country: TW (occurrence: TW)
  Receive Date: 20181107
  Receipt Date: 20220406
  Transmission Date: 20220721
  Serious: Yes (Other)
  Sender: FDA-Public Use
  Company Number: TW-LUPIN PHARMACEUTICALS INC.-2018-07688

PATIENT
  Age: 64 Year
  Sex: Male

DRUGS (2)
  1. RIFAMPIN [Interacting]
     Active Substance: RIFAMPIN
     Indication: Pulmonary tuberculosis
     Dosage: 600 MG, QD
     Route: 048
  2. SIROLIMUS [Interacting]
     Active Substance: SIROLIMUS
     Indication: Immunosuppression
     Dosage: UNK
     Route: 065

REACTIONS (2)
  - Transplant rejection [Unknown]
  - Drug interaction [Unknown]
